FAERS Safety Report 24792546 (Version 1)
Quarter: 2024Q4

REPORT INFORMATION
  Report Type: Spontaneous
  Country: RU (occurrence: RU)
  Receive Date: 20241231
  Receipt Date: 20241231
  Transmission Date: 20250114
  Serious: Yes (Other)
  Sender: AMGEN
  Company Number: RU-AMGEN-RUSSP2024253844

PATIENT

DRUGS (1)
  1. APREMILAST [Suspect]
     Active Substance: APREMILAST
     Indication: Psoriasis
     Dosage: UNK
     Route: 065

REACTIONS (13)
  - Coronavirus infection [Unknown]
  - Nausea [Unknown]
  - Abdominal pain [Unknown]
  - Headache [Unknown]
  - Upper respiratory tract infection [Unknown]
  - Herpes virus infection [Unknown]
  - Diarrhoea [Unknown]
  - Nasopharyngitis [Unknown]
  - Herpes zoster [Unknown]
  - Erythema [Unknown]
  - Transaminases increased [Unknown]
  - Burning sensation [Unknown]
  - Dry skin [Unknown]
